FAERS Safety Report 4985444-1 (Version None)
Quarter: 2006Q2

REPORT INFORMATION
  Report Type: 
  Country: None (occurrence: None)
  Receive Date: 20060428
  Receipt Date: 20060420
  Transmission Date: 20061013
  Serious: Yes (Other)
  Sender: FDA-Public Use
  Company Number: DE-JNJFOC-20060404765

PATIENT
  Age: 69 Year
  Sex: Female
  Weight: 90 kg

DRUGS (17)
  1. REMICADE [Suspect]
     Route: 042
  2. REMICADE [Suspect]
     Route: 042
  3. REMICADE [Suspect]
     Indication: PYODERMA GANGRENOSUM
     Route: 042
  4. DECORTIN [Concomitant]
     Indication: PYODERMA GANGRENOSUM
     Dosage: WILL BE GIVEN UNTIL MAR-2006
     Route: 048
  5. ISONIAZID [Concomitant]
     Indication: PROPHYLAXIS
     Dosage: WILL BE GIVEN UNTIL MAR-2006
     Route: 048
  6. IMATINIB [Concomitant]
     Dosage: WILL BE GIVEN UNTIL MAR-2006
     Route: 048
  7. IMATINIB [Concomitant]
     Dosage: WILL BE GIVEN UNTIL MAR-2006
     Route: 048
  8. AMARYL [Concomitant]
     Indication: DIABETES MELLITUS
     Route: 065
  9. XIPAMIDE [Concomitant]
     Route: 065
  10. BISOPROLOL [Concomitant]
     Route: 065
  11. HYDROCHLOROTHIAZIDE [Concomitant]
     Route: 065
  12. RAMIPRIL [Concomitant]
     Route: 065
  13. AMITRYPTILLIN [Concomitant]
     Indication: DEPRESSION
     Route: 065
  14. DIPYRONE TAB [Concomitant]
     Indication: PAIN
     Route: 065
  15. LACTULOSE [Concomitant]
     Route: 065
  16. MORPHINE RETARD [Concomitant]
     Indication: PAIN
     Route: 065
  17. NEXIUM [Concomitant]
     Indication: GASTROINTESTINAL DISORDER THERAPY
     Route: 065

REACTIONS (5)
  - DEHYDRATION [None]
  - HYPOGLYCAEMIA [None]
  - PNEUMONIA [None]
  - RENAL FAILURE ACUTE [None]
  - SEPTIC SHOCK [None]
